FAERS Safety Report 12138397 (Version 1)
Quarter: 2016Q1

REPORT INFORMATION
  Report Type: Spontaneous
  Country: US (occurrence: US)
  Receive Date: 20160302
  Receipt Date: 20160302
  Transmission Date: 20160526
  Serious: No
  Sender: FDA-Public Use
  Company Number: US-009507513-1602USA012927

PATIENT

DRUGS (1)
  1. INTRON A [Suspect]
     Active Substance: INTERFERON ALFA-2B
     Dosage: 1 DROP TO LEFT EYE, QID (INTRONA RECONSITUTED TO PROVIDE 1 MILLION UNITS PER MILLILITER)
     Route: 047

REACTIONS (2)
  - Product use issue [Unknown]
  - No adverse event [Unknown]
